FAERS Safety Report 17286901 (Version 2)
Quarter: 2020Q4

REPORT INFORMATION
  Report Type: Spontaneous
  Country: US (occurrence: US)
  Receive Date: 20200120
  Receipt Date: 20201111
  Transmission Date: 20210113
  Serious: Yes (Hospitalization, Other)
  Sender: FDA-Public Use
  Company Number: US-SA-2020SA009425

PATIENT

DRUGS (5)
  1. DULOXETINE. [Concomitant]
     Active Substance: DULOXETINE
     Dosage: 30 MG, QD
     Route: 048
     Dates: start: 20200106, end: 20200106
  2. BUPROPION HYDROCHLORIDE XL [Concomitant]
     Active Substance: BUPROPION HYDROCHLORIDE
     Dosage: 300 MG, QD
     Route: 048
     Dates: start: 20200106
  3. GADOBUTROL. [Concomitant]
     Active Substance: GADOBUTROL
     Dosage: 7.5 ML, QD
     Route: 042
     Dates: start: 20200105
  4. CEREZYME [Suspect]
     Active Substance: IMIGLUCERASE
     Indication: GAUCHER^S DISEASE
     Dosage: 60 MG/KG, QOW
     Route: 041
     Dates: start: 20070215
  5. ZONISAMIDE. [Concomitant]
     Active Substance: ZONISAMIDE
     Dosage: 100 MG, QID
     Route: 048
     Dates: start: 20200105

REACTIONS (29)
  - Thrombocytopenia [Unknown]
  - Gallbladder oedema [Unknown]
  - Nausea [Not Recovered/Not Resolved]
  - Gallbladder enlargement [Unknown]
  - Fatigue [Not Recovered/Not Resolved]
  - Dizziness [Not Recovered/Not Resolved]
  - Headache [Not Recovered/Not Resolved]
  - Hepatomegaly [Unknown]
  - Pyelitis [Unknown]
  - Urinary tract infection [Unknown]
  - Cholecystitis acute [Unknown]
  - Jugular vein thrombosis [Unknown]
  - X-ray abnormal [Unknown]
  - Atelectasis [Unknown]
  - Feeding disorder [Unknown]
  - Nausea [Not Recovered/Not Resolved]
  - Pyelonephritis [Unknown]
  - Hypophagia [Not Recovered/Not Resolved]
  - Constipation [Not Recovered/Not Resolved]
  - Magnetic resonance imaging abnormal [Unknown]
  - Dehydration [Unknown]
  - Cholelithiasis [Unknown]
  - Bile output decreased [Unknown]
  - Vomiting [Not Recovered/Not Resolved]
  - Autoimmune haemolytic anaemia [Unknown]
  - Nephrolithiasis [Unknown]
  - Pain [Not Recovered/Not Resolved]
  - Total lung capacity decreased [Unknown]
  - Abdominal pain [Not Recovered/Not Resolved]

NARRATIVE: CASE EVENT DATE: 20200101
